FAERS Safety Report 4600408-5 (Version None)
Quarter: 2005Q1

REPORT INFORMATION
  Report Type: 
  Country: None (occurrence: None)
  Receive Date: 20050127
  Receipt Date: 20041020
  Transmission Date: 20050727
  Serious: No
  Sender: FDA-Public Use
  Company Number: USA041081686

PATIENT
  Age: 7 Year
  Sex: Female
  Weight: 40 kg

DRUGS (1)
  1. STRATTERA [Suspect]
     Indication: DISTURBANCE IN ATTENTION
     Dosage: 40 MG/1 DAY
     Dates: start: 20031101

REACTIONS (6)
  - CHAPPED LIPS [None]
  - DRY MOUTH [None]
  - LIP DRY [None]
  - SKIN CHAPPED [None]
  - SUBCUTANEOUS NODULE [None]
  - THIRST [None]
